FAERS Safety Report 14313436 (Version 2)
Quarter: 2018Q1

REPORT INFORMATION
  Report Type: Spontaneous
  Country: JP (occurrence: JP)
  Receive Date: 20171221
  Receipt Date: 20180320
  Transmission Date: 20180509
  Serious: Yes (Death)
  Sender: FDA-Public Use
  Company Number: JP-EISAI MEDICAL RESEARCH-EC-2017-034413

PATIENT
  Age: 26 Year
  Sex: Male
  Weight: 64 kg

DRUGS (12)
  1. ALLELOCK [Concomitant]
     Active Substance: OLOPATADINE HYDROCHLORIDE
     Indication: HYPERSENSITIVITY
     Route: 048
     Dates: start: 20170101, end: 20171023
  2. SODIUM CHLORIDE. [Concomitant]
     Active Substance: SODIUM CHLORIDE
     Indication: HYPONATRAEMIA
     Route: 048
     Dates: start: 20170101, end: 20171023
  3. PRANLUKAST [Concomitant]
     Active Substance: PRANLUKAST
     Indication: HYPERSENSITIVITY
     Route: 048
     Dates: start: 20170101, end: 20171023
  4. BAKTAR [Concomitant]
     Active Substance: SULFAMETHOXAZOLE\TRIMETHOPRIM
     Indication: URINARY TRACT INFECTION
     Route: 048
     Dates: start: 20170101, end: 20171023
  5. FYCOMPA [Suspect]
     Active Substance: PERAMPANEL
     Route: 050
     Dates: start: 20170917, end: 20171023
  6. FAMOTIDINE. [Concomitant]
     Active Substance: FAMOTIDINE
     Indication: GASTRITIS PROPHYLAXIS
     Route: 048
     Dates: start: 20170101, end: 20171023
  7. ENSURE [Concomitant]
     Active Substance: AMINO ACIDS\DEXTROSE\ELECTROLYTES NOS\SOYBEAN OIL\VITAMINS
     Indication: NUTRITIONAL SUPPLEMENTATION
     Dosage: 500 ML
     Route: 048
     Dates: start: 20170101, end: 20171023
  8. FYCOMPA [Suspect]
     Active Substance: PERAMPANEL
     Indication: EPILEPSY
     Route: 050
     Dates: start: 20170420, end: 20170916
  9. E KEPPRA [Concomitant]
     Active Substance: LEVETIRACETAM
     Indication: SEIZURE
     Route: 048
     Dates: start: 20170101, end: 20171023
  10. EBRANTIL [Concomitant]
     Active Substance: URAPIDIL
     Indication: PRODUCT USED FOR UNKNOWN INDICATION
     Route: 048
     Dates: start: 20170101, end: 20171023
  11. TSUMURA HOCHUKKITO EXTRACT GRANULES FOR ETHICAL USE [Concomitant]
     Indication: INFECTION SUSCEPTIBILITY INCREASED
     Route: 048
     Dates: start: 20170101, end: 20171023
  12. PHENOBAL [Concomitant]
     Active Substance: PHENOBARBITAL
     Indication: SEIZURE
     Route: 048
     Dates: start: 20170101, end: 20171023

REACTIONS (1)
  - Sudden unexplained death in epilepsy [Fatal]

NARRATIVE: CASE EVENT DATE: 20171023
